FAERS Safety Report 5127866-4 (Version None)
Quarter: 2006Q4

REPORT INFORMATION
  Report Type: 
  Country: None (occurrence: None)
  Receive Date: 20061010
  Receipt Date: 20061009
  Transmission Date: 20070319
  Serious: Yes (Life-Threatening, Hospitalization, Other)
  Sender: FDA-Public Use
  Company Number: HQWYE361611AUG06

PATIENT
  Age: 56 Year
  Sex: Female

DRUGS (9)
  1. RAPAMUNE [Suspect]
     Indication: RENAL TRANSPLANT
     Dosage: 2 MG 1X PER 1 DAY; 1 MG 1X PER 1 DAY
     Route: 048
     Dates: start: 20060107, end: 20060701
  2. ALLOPURINOL [Concomitant]
  3. AMLODIPINE [Concomitant]
  4. PROPRANOLOL HYDROCHLORIDE [Concomitant]
  5. CLONAZEPAM [Concomitant]
  6. PREDNISOLONE [Suspect]
     Indication: IMMUNOSUPPRESSANT DRUG THERAPY
     Dosage: 5 MG 1X PER 1 DAY
     Route: 048
     Dates: start: 20060107
  7. TACROLIMUS (TACROLIMUS,) [Suspect]
     Indication: IMMUNOSUPPRESSANT DRUG THERAPY
     Dosage: 0.5 MG 2X PER 1 DAY
     Route: 048
     Dates: start: 20060107
  8. LANTUS [Concomitant]
  9. NOVORAPID (INSULIN ASPART) [Concomitant]

REACTIONS (19)
  - ACINETOBACTER INFECTION [None]
  - ACUTE RESPIRATORY DISTRESS SYNDROME [None]
  - BLOOD AMYLASE INCREASED [None]
  - BLOOD CALCIUM INCREASED [None]
  - BLOOD GLUCOSE DECREASED [None]
  - C-REACTIVE PROTEIN INCREASED [None]
  - CULTURE URINE POSITIVE [None]
  - HERPES VIRUS INFECTION [None]
  - KIDNEY TRANSPLANT REJECTION [None]
  - LYMPHOCYTE PERCENTAGE DECREASED [None]
  - NEUTROPHIL PERCENTAGE INCREASED [None]
  - PLATELET COUNT DECREASED [None]
  - PSEUDOMONAS INFECTION [None]
  - PYREXIA [None]
  - RED BLOOD CELL COUNT DECREASED [None]
  - SERRATIA INFECTION [None]
  - SPUTUM CULTURE POSITIVE [None]
  - STENOTROPHOMONAS INFECTION [None]
  - WHITE BLOOD CELL COUNT INCREASED [None]
